FAERS Safety Report 10178751 (Version 1)
Quarter: 2014Q2

REPORT INFORMATION
  Report Type: Spontaneous
  Country: CA (occurrence: CA)
  Receive Date: 20140519
  Receipt Date: 20140519
  Transmission Date: 20141212
  Serious: Yes (Other)
  Sender: FDA-Public Use
  Company Number: CA-009507513-1405CAN007536

PATIENT
  Age: 56 Year
  Sex: Male

DRUGS (6)
  1. VICTRELIS [Suspect]
     Dosage: UNK
     Route: 065
  2. RIBAVIRIN [Suspect]
     Dosage: 600.0 MILIGRAM, 2 EVERY 1 DAY
     Route: 048
  3. PEGASYS [Suspect]
     Dosage: 180 MICROGRAM, 1 EVERY 1 WEEK
     Route: 058
  4. DIAMICRON [Concomitant]
     Route: 065
  5. FLOVENT [Concomitant]
     Route: 065
  6. WELLBUTRIN [Concomitant]
     Route: 065

REACTIONS (1)
  - Respiratory distress [Not Recovered/Not Resolved]
